FAERS Safety Report 6980987-3 (Version None)
Quarter: 2010Q3

REPORT INFORMATION
  Report Type: 
  Country: None (occurrence: None)
  Receive Date: 20100914
  Receipt Date: 20100903
  Transmission Date: 20110219
  Serious: Yes (Hospitalization)
  Sender: FDA-Public Use
  Company Number: B0672915A

PATIENT
  Sex: Male

DRUGS (6)
  1. ARIXTRA [Suspect]
     Indication: ATRIAL FIBRILLATION
     Dosage: 10MG PER DAY
     Route: 058
     Dates: start: 20100730, end: 20100806
  2. PREVISCAN [Suspect]
     Indication: ATRIAL FIBRILLATION
     Route: 048
     Dates: end: 20100807
  3. AMIODARONE HCL [Concomitant]
     Dosage: 200MG PER DAY
     Route: 048
  4. FLUVASTATIN [Concomitant]
     Dosage: 80MG PER DAY
     Route: 048
  5. CARVEDILOL [Concomitant]
     Dosage: 6.25MG TWICE PER DAY
     Route: 048
  6. ZANIDIP [Concomitant]
     Dosage: 20MG PER DAY
     Route: 048

REACTIONS (8)
  - ARTHRALGIA [None]
  - BLOOD PRESSURE SYSTOLIC INCREASED [None]
  - DRUG INTERACTION [None]
  - HAEMATOMA [None]
  - MOBILITY DECREASED [None]
  - MUSCULOSKELETAL PAIN [None]
  - OFF LABEL USE [None]
  - PAIN IN EXTREMITY [None]
